FAERS Safety Report 12118644 (Version 2)
Quarter: 2016Q3

REPORT INFORMATION
  Report Type: Spontaneous
  Country: MA (occurrence: MA)
  Receive Date: 20160226
  Receipt Date: 20160701
  Transmission Date: 20161109
  Serious: Yes (Death)
  Sender: FDA-Public Use
  Company Number: MA-BIOVITRUM-2016MA0107

PATIENT
  Age: 3 Month
  Sex: Female
  Weight: 5 kg

DRUGS (1)
  1. ORFADIN [Suspect]
     Active Substance: NITISINONE
     Indication: TYROSINAEMIA
     Dosage: 12 MG/KG
     Route: 048
     Dates: start: 20160209, end: 20160216

REACTIONS (5)
  - Gastrointestinal haemorrhage [Fatal]
  - Seizure [Fatal]
  - Vomiting [Fatal]
  - Condition aggravated [Fatal]
  - Hepatic encephalopathy [Fatal]

NARRATIVE: CASE EVENT DATE: 201602
